FAERS Safety Report 9060502 (Version 2)
Quarter: 2013Q1

REPORT INFORMATION
  Report Type: Spontaneous
  Country: IT (occurrence: HR)
  Receive Date: 20130125
  Receipt Date: 20130125
  Transmission Date: 20140127
  Serious: Yes (Other)
  Sender: FDA-Public Use
  Company Number: HR-FRI-1000041768

PATIENT
  Sex: Female

DRUGS (5)
  1. NEBIVOLOL [Suspect]
     Indication: HYPERTENSION
     Dosage: 2.5 MG
     Route: 048
     Dates: start: 2008, end: 2010
  2. NEBIVOLOL [Suspect]
     Indication: HYPERTENSION
     Dosage: 5 MG
     Route: 048
     Dates: start: 2010, end: 20121115
  3. NEBIVOLOL [Suspect]
  4. TERTENSIF [Concomitant]
     Indication: HYPERTENSION
     Dates: start: 2011, end: 20121115
  5. FUROSEMID [Concomitant]
     Indication: HYPERTENSION
     Dates: start: 2012, end: 20121115

REACTIONS (1)
  - Hyperkalaemia [Recovered/Resolved]
